FAERS Safety Report 5166783-0 (Version None)
Quarter: 2006Q4

REPORT INFORMATION
  Report Type: 
  Country: None (occurrence: None)
  Receive Date: 20061129
  Receipt Date: 20061114
  Transmission Date: 20070319
  Serious: Yes (Hospitalization)
  Sender: FDA-Public Use
  Company Number: 2006-150437-NL

PATIENT
  Age: 23 Year
  Sex: Female
  Weight: 97.5 kg

DRUGS (2)
  1. NUVARING [Suspect]
     Indication: CONTRACEPTION
     Dosage: VAGINAL, 3 WEEKS IN, 1 WEEK OUT
     Route: 067
     Dates: start: 20021101, end: 20030901
  2. NUVARING [Suspect]
     Indication: CONTRACEPTION
     Dosage: VAGINAL, 3 WEEKS IN, 1 WEEK OUT
     Route: 067
     Dates: start: 20060301

REACTIONS (11)
  - CYSTITIS [None]
  - DRUG EXPOSURE BEFORE PREGNANCY [None]
  - GAIT DISTURBANCE [None]
  - HAEMORRHAGE [None]
  - HEADACHE [None]
  - INFECTION [None]
  - MUSCLE SPASMS [None]
  - NASOPHARYNGITIS [None]
  - PREMATURE BABY [None]
  - PREMATURE LABOUR [None]
  - UNINTENDED PREGNANCY [None]
